FAERS Safety Report 8202427-9 (Version None)
Quarter: 2012Q1

REPORT INFORMATION
  Report Type: 
  Country: None (occurrence: None)
  Receive Date: 20120312
  Receipt Date: 20110926
  Transmission Date: 20120608
  Serious: No
  Sender: FDA-Public Use
  Company Number: US-ABBOTT-11P-163-0859730-00

PATIENT
  Age: 48 Year
  Sex: Female
  Weight: 45.4 kg

DRUGS (12)
  1. HALDOL [Suspect]
     Indication: MANIA
  2. PROGENTIN [Concomitant]
     Indication: BIPOLAR DISORDER
     Dates: start: 20110501, end: 20110601
  3. ABILIFY [Suspect]
     Indication: BIPOLAR DISORDER
     Route: 048
  4. DEPAKOTE [Suspect]
     Indication: SCHIZOAFFECTIVE DISORDER
     Dosage: 500MG DOSE AND 1000MG DOSE 12 H APART
     Route: 048
  5. PROGENTIN [Concomitant]
     Indication: SCHIZOAFFECTIVE DISORDER
  6. DEPAKOTE [Suspect]
     Indication: MANIA
  7. ABILIFY [Suspect]
     Indication: SCHIZOAFFECTIVE DISORDER
  8. PROGENTIN [Concomitant]
     Indication: MANIA
  9. DEPAKOTE [Suspect]
     Indication: BIPOLAR DISORDER
     Route: 048
     Dates: start: 20110501
  10. ABILIFY [Suspect]
     Indication: MANIA
  11. HALDOL [Suspect]
     Indication: BIPOLAR DISORDER
     Route: 048
     Dates: start: 20110501
  12. HALDOL [Suspect]
     Indication: SCHIZOAFFECTIVE DISORDER
     Dosage: TAKEN OFF COLD TURKEY
     Route: 048
     Dates: start: 20110101, end: 20110101

REACTIONS (14)
  - EYE MOVEMENT DISORDER [None]
  - ABNORMAL BEHAVIOUR [None]
  - TOBACCO USER [None]
  - DECREASED APPETITE [None]
  - SOCIAL AVOIDANT BEHAVIOUR [None]
  - MUSCLE TWITCHING [None]
  - DYSKINESIA [None]
  - GRUNTING [None]
  - POLYDIPSIA [None]
  - FATIGUE [None]
  - BRUXISM [None]
  - RETCHING [None]
  - MUTISM [None]
  - SOMNOLENCE [None]
